FAERS Safety Report 7221600 (Version 4)
Quarter: 2013Q1

REPORT INFORMATION
  Report Type: Spontaneous
  Country: US (occurrence: US)
  Receive Date: 20091217
  Receipt Date: 20130301
  Transmission Date: 20140127
  Serious: Yes (Death, Other)
  Sender: FDA-Public Use
  Company Number: US-PFIZER INC-2009308066

PATIENT
  Age: 69 Year
  Sex: Male

DRUGS (11)
  1. DILANTIN [Suspect]
     Indication: CONVULSION
     Dosage: 100 MG, 3X/DAY
     Route: 048
     Dates: start: 20060714
  2. DILANTIN [Suspect]
     Dosage: 50 MG, UNK
     Route: 048
     Dates: start: 20060721, end: 20060721
  3. TAMSULOSIN [Concomitant]
     Dosage: 0.4 MG, UNK
     Route: 048
  4. DIGOXIN [Concomitant]
     Dosage: 0.625 MG, UNK
     Route: 048
  5. LIPITOR [Concomitant]
     Dosage: 40 MG, 1X/DAY
     Route: 048
  6. LISINOPRIL [Concomitant]
     Dosage: 2.5 MG, UNK
     Route: 048
  7. TOPROL XL [Concomitant]
     Dosage: 25 MG, 1X/DAY
     Route: 048
  8. ASA [Concomitant]
     Dosage: 81 MG, 1X/DAY
     Route: 048
  9. PRILOSEC [Concomitant]
     Dosage: UNK
  10. AMIODARONE [Concomitant]
     Dosage: 200 MG, 1X/DAY
  11. CIPROFLOXACIN [Concomitant]
     Dosage: 500 MG, UNK
     Route: 048

REACTIONS (1)
  - Stevens-Johnson syndrome [Fatal]
